FAERS Safety Report 24734208 (Version 1)
Quarter: 2024Q4

REPORT INFORMATION
  Report Type: Spontaneous
  Country: US (occurrence: US)
  Receive Date: 20241214
  Receipt Date: 20241214
  Transmission Date: 20250115
  Serious: No
  Sender: ALKEM
  Company Number: US-ALKEM LABORATORIES LIMITED-US-ALKEM-2023-16647

PATIENT
  Age: 76 Year
  Sex: Male

DRUGS (9)
  1. MYCOPHENOLATE MOFETIL [Suspect]
     Active Substance: MYCOPHENOLATE MOFETIL
     Indication: Warm autoimmune haemolytic anaemia
     Dosage: 500 MILLIGRAM, BID (TWICE DAILY)
     Route: 065
  2. METHYLPREDNISOLONE [Suspect]
     Active Substance: METHYLPREDNISOLONE
     Indication: Warm autoimmune haemolytic anaemia
     Dosage: 1 MILLIGRAM/KILOGRAM, QD
     Route: 042
  3. PREDNISONE [Suspect]
     Active Substance: PREDNISONE
     Indication: Warm autoimmune haemolytic anaemia
     Dosage: 120 MILLIGRAM, QD (DAILY)
     Route: 065
  4. EPOETIN ALFA [Concomitant]
     Active Substance: ERYTHROPOIETIN
     Indication: Warm autoimmune haemolytic anaemia
     Dosage: 10000 UNITS
     Route: 065
  5. FOLIC ACID [Concomitant]
     Active Substance: FOLIC ACID
     Indication: Warm autoimmune haemolytic anaemia
     Dosage: 1 GRAM, QD (DAILY)
     Route: 065
  6. IBUPROFEN [Concomitant]
     Active Substance: IBUPROFEN
     Indication: Tension headache
     Dosage: 800 MILLIGRAM, OD
     Route: 065
  7. HUMAN IMMUNOGLOBULIN G [Concomitant]
     Active Substance: HUMAN IMMUNOGLOBULIN G
     Indication: Warm autoimmune haemolytic anaemia
     Dosage: 1 GRAM PER KILOGRAM, OD
     Route: 065
  8. METOPROLOL SUCCINATE [Concomitant]
     Active Substance: METOPROLOL SUCCINATE
     Indication: Product used for unknown indication
     Dosage: 25 MILLIGRAM, QD (DAILY)
     Route: 065
  9. RITUXIMAB [Concomitant]
     Active Substance: RITUXIMAB
     Indication: Warm autoimmune haemolytic anaemia
     Dosage: 375 MILLIGRAM/SQ. METER, ONCE WEEKLY (FOR 4 WEEKS)
     Route: 065

REACTIONS (1)
  - Drug ineffective [Unknown]
